FAERS Safety Report 6078462-6 (Version None)
Quarter: 2009Q1

REPORT INFORMATION
  Report Type: 
  Country: None (occurrence: None)
  Receive Date: 20090212
  Receipt Date: 20090212
  Transmission Date: 20090719
  Serious: Yes (Life-Threatening)
  Sender: FDA-Public Use
  Company Number: None

PATIENT
  Age: 5 Year
  Sex: Male
  Weight: 29.4838 kg

DRUGS (1)
  1. ZITHROMAX [Suspect]
     Indication: BRONCHITIS
     Dosage: 1 SPOON TWICE THE 1ST DAY PO 1 SPOON EACH DAY FOR 4 DAY PO
     Route: 048
     Dates: start: 20080202, end: 20080206

REACTIONS (15)
  - BACK DISORDER [None]
  - BURNS THIRD DEGREE [None]
  - DYSURIA [None]
  - EATING DISORDER SYMPTOM [None]
  - GASTRIC DISORDER [None]
  - GENITAL LESION [None]
  - HAEMORRHAGE [None]
  - LIP DISORDER [None]
  - LIP SWELLING [None]
  - OEDEMA MOUTH [None]
  - PYREXIA [None]
  - RASH GENERALISED [None]
  - SKIN LESION [None]
  - STOMATITIS [None]
  - SWOLLEN TONGUE [None]
